FAERS Safety Report 9767516 (Version 2)
Quarter: 2014Q1

REPORT INFORMATION
  Report Type: Spontaneous
  Country: US (occurrence: US)
  Receive Date: 20131217
  Receipt Date: 20140127
  Transmission Date: 20141002
  Serious: Yes (Other)
  Sender: FDA-Public Use
  Company Number: US-BAYER-2013-151255

PATIENT
  Age: 68 Year
  Sex: Male

DRUGS (1)
  1. XOFIGO [Suspect]

REACTIONS (2)
  - Metastases to spine [None]
  - Spinal column stenosis [None]
